FAERS Safety Report 13826468 (Version 1)
Quarter: 2017Q3

REPORT INFORMATION
  Report Type: Spontaneous
  Country: US (occurrence: US)
  Receive Date: 20170802
  Receipt Date: 20170802
  Transmission Date: 20171127
  Serious: Yes (Hospitalization)
  Sender: FDA-Public Use
  Company Number: US-UNITED THERAPEUTICS-UNT-2017-011313

PATIENT
  Sex: Female

DRUGS (1)
  1. REMODULIN [Suspect]
     Active Substance: TREPROSTINIL
     Indication: PULMONARY HYPERTENSION
     Dosage: 0.012 ?G/KG, CONTINUING
     Route: 058
     Dates: start: 20160719

REACTIONS (5)
  - Infusion site pain [Unknown]
  - Infusion site bruising [Unknown]
  - Pneumonia [Recovering/Resolving]
  - Infusion site haemorrhage [Recovered/Resolved]
  - Infusion site nodule [Unknown]

NARRATIVE: CASE EVENT DATE: 201707
